FAERS Safety Report 26015649 (Version 1)
Quarter: 2025Q4

REPORT INFORMATION
  Report Type: Spontaneous
  Country: US (occurrence: US)
  Receive Date: 20251109
  Receipt Date: 20251109
  Transmission Date: 20260118
  Serious: Yes (Hospitalization, Other)
  Sender: TWI PHARMACEUTICALS
  Company Number: US-TWI PHARMACEUTICAL, INC-20250901242

PATIENT
  Age: 66 Year
  Sex: Female
  Weight: 86.4 kg

DRUGS (33)
  1. LISINOPRIL [Suspect]
     Active Substance: LISINOPRIL
     Indication: Hypertension
     Dosage: 5 MG, QD
     Route: 048
     Dates: start: 2015
  2. .DELTA.8-TETRAHYDROCANNABINOL\HERBALS [Suspect]
     Active Substance: .DELTA.8-TETRAHYDROCANNABINOL\HERBALS
     Indication: Back pain
     Dosage: UNK
     Route: 065
     Dates: start: 202408, end: 20240913
  3. ACETAMINOPHEN [Concomitant]
     Active Substance: ACETAMINOPHEN
     Indication: Intervertebral disc degeneration
     Dosage: EVERY 4 HOUR(S) THERAPY
     Route: 048
     Dates: start: 2015
  4. ALBUTEROL\IPRATROPIUM [Concomitant]
     Active Substance: ALBUTEROL\IPRATROPIUM
     Indication: Chronic obstructive pulmonary disease
     Dosage: 2.5 MG
     Dates: start: 2013
  5. ARIPIPRAZOLE [Concomitant]
     Active Substance: ARIPIPRAZOLE
     Indication: Major depression
     Dosage: 5 MILLIGRAM, QD
     Route: 048
     Dates: start: 2015
  6. LEVOTHYROXINE [Concomitant]
     Active Substance: LEVOTHYROXINE
     Indication: Hypothyroidism
     Dosage: 150 MICROGRAM, QD
     Route: 048
     Dates: start: 2013
  7. ATORVASTATIN [Concomitant]
     Active Substance: ATORVASTATIN
     Indication: Hyperlipidaemia
     Dosage: 40 MILLIGRAM, QD
     Route: 048
     Dates: start: 2015
  8. BUPROPION HYDROCHLORIDE [Concomitant]
     Active Substance: BUPROPION HYDROCHLORIDE
     Indication: Major depression
     Dosage: 150 MILLIGRAM, EVERY 12 HOURS
     Route: 048
     Dates: start: 2020
  9. CETIRIZINE [Concomitant]
     Active Substance: CETIRIZINE HYDROCHLORIDE
     Indication: Seasonal allergy
     Dosage: 10 MILLIGRAM, QD
     Route: 048
     Dates: start: 2015
  10. CLONAZEPAM [Concomitant]
     Active Substance: CLONAZEPAM
     Indication: Generalised anxiety disorder
     Dosage: 0.5 MILLIGRAM
     Route: 048
     Dates: start: 2013
  11. CYANOCOBALAMIN [Concomitant]
     Active Substance: CYANOCOBALAMIN
     Indication: Pernicious anaemia
     Dosage: 1000 MICROGRAM
     Route: 030
     Dates: start: 2015
  12. CYCLOBENZAPRINE HYDROCHLORIDE [Concomitant]
     Active Substance: CYCLOBENZAPRINE HYDROCHLORIDE
     Indication: Spinal pain
     Dosage: 10 MILLIGRAM, QD
     Route: 048
     Dates: start: 201404
  13. ESCITALOPRAM [Concomitant]
     Active Substance: ESCITALOPRAM OXALATE
     Indication: Major depression
     Dosage: 20 MILLIGRAM, QD
     Route: 048
     Dates: start: 2015
  14. EZETIMIBE [Concomitant]
     Active Substance: EZETIMIBE
     Indication: Hyperlipidaemia
     Dosage: 10 MILLIGRAM, QD
     Route: 048
     Dates: start: 2020
  15. FAMOTIDINE [Concomitant]
     Active Substance: FAMOTIDINE
     Indication: Gastrooesophageal reflux disease
     Dosage: 20 MILLIGRAM, EVERY 12 HOURS
     Route: 048
     Dates: start: 2022
  16. FENOFIBRATE [Concomitant]
     Active Substance: FENOFIBRATE
     Indication: Hyperlipidaemia
     Dosage: 160 MILLIGRAM, QD
     Route: 048
     Dates: start: 2015
  17. FLUTICASONE [Concomitant]
     Active Substance: FLUTICASONE
     Indication: Seasonal allergy
     Dosage: 50 MICROGRAM, QD
     Route: 045
     Dates: start: 2015
  18. GABAPENTIN [Concomitant]
     Active Substance: GABAPENTIN
     Indication: Intervertebral disc degeneration
     Dosage: 600 MILLIGRAM
     Route: 048
     Dates: start: 2015
  19. GLIMEPIRIDE [Concomitant]
     Active Substance: GLIMEPIRIDE
     Indication: Type 2 diabetes mellitus
     Dosage: 4 MILLIGRAM, QD
     Route: 048
     Dates: start: 2022
  20. MAGNESIUM OXIDE [Concomitant]
     Active Substance: MAGNESIUM OXIDE
     Indication: Muscle spasms
     Dosage: 400 MILLIGRAM, QD
     Route: 048
     Dates: start: 2020
  21. MELOXICAM [Concomitant]
     Active Substance: MELOXICAM
     Indication: Intervertebral disc degeneration
     Dosage: 15 MILLIGRAM, QD
     Route: 048
     Dates: start: 2015
  22. MONTELUKAST [Concomitant]
     Active Substance: MONTELUKAST
     Indication: Chronic obstructive pulmonary disease
     Dosage: 10 MILLIGRAM, QD
     Route: 048
     Dates: start: 2019
  23. NORCO [Concomitant]
     Active Substance: ACETAMINOPHEN\HYDROCODONE BITARTRATE
     Indication: Intervertebral disc degeneration
     Dosage: 325 MG
     Route: 048
     Dates: start: 2015
  24. PANTOPRAZOLE [Concomitant]
     Active Substance: PANTOPRAZOLE
     Indication: Gastrooesophageal reflux disease
     Dosage: 40 MILLIGRAM, QD
     Route: 048
     Dates: start: 2022
  25. PIOGLITAZONE [Concomitant]
     Active Substance: PIOGLITAZONE
     Indication: Type 2 diabetes mellitus
     Dosage: 15 MILLIGRAM, QD
     Route: 048
     Dates: start: 2022
  26. PRIMIDONE [Concomitant]
     Active Substance: PRIMIDONE
     Indication: Essential tremor
     Dosage: 50 MILLIGRAM, QD
     Route: 048
     Dates: start: 2019
  27. VENTOLIN HFA [Concomitant]
     Active Substance: ALBUTEROL SULFATE
     Indication: Asthma
     Dosage: EVERY 6 HOUR(S) DOSE- 2 PUFF
     Route: 055
     Dates: start: 2013
  28. METHOCARBAMOL [Concomitant]
     Active Substance: METHOCARBAMOL
     Indication: Spinal pain
     Dosage: 750 MILLIGRAM
     Route: 048
     Dates: start: 202004, end: 202404
  29. SUCRALFATE [Concomitant]
     Active Substance: SUCRALFATE
     Indication: Gastritis
     Dosage: EVERY 6 HOUR(S) DOSE- 1 MG/L
     Route: 048
     Dates: start: 202307, end: 202404
  30. AMOXICILLIN [Concomitant]
     Active Substance: AMOXICILLIN
     Indication: Urinary tract infection
     Dosage: 2000 MILLIGRAM, / DAY
     Route: 048
     Dates: start: 20240507, end: 20240507
  31. BACTRIM [Concomitant]
     Active Substance: SULFAMETHOXAZOLE\TRIMETHOPRIM
     Indication: Urinary tract infection
     Dosage: EVERY 12 HOUR(S) DOSE- 800/160 MG
     Route: 048
     Dates: start: 20240429, end: 20240502
  32. CANNABIS SATIVA SUBSP. INDICA TOP [Concomitant]
     Active Substance: CANNABIS SATIVA SUBSP. INDICA TOP
     Indication: Back pain
     Dosage: UNK
     Route: 065
     Dates: start: 202408, end: 20240913
  33. CIPROFLOXACIN [Concomitant]
     Active Substance: CIPROFLOXACIN
     Indication: Cough
     Dosage: 500 MILLIGRAM, EVERY 12 HOURS
     Route: 048
     Dates: start: 20240902, end: 20240912

REACTIONS (1)
  - Syncope [Recovered/Resolved]

NARRATIVE: CASE EVENT DATE: 20240913
